FAERS Safety Report 23122696 (Version 2)
Quarter: 2023Q4

REPORT INFORMATION
  Report Type: Report from Study
  Country: CA (occurrence: CA)
  Receive Date: 20231030
  Receipt Date: 20231127
  Transmission Date: 20240110
  Serious: Yes (Other)
  Sender: FDA-Public Use
  Company Number: CA-TAKEDA-2023TUS094210

PATIENT
  Age: 50 Year
  Sex: Female

DRUGS (15)
  1. VEDOLIZUMAB [Suspect]
     Active Substance: VEDOLIZUMAB
     Indication: Colitis ulcerative
     Dosage: 300 MILLIGRAM
     Route: 042
     Dates: start: 20230320
  2. VEDOLIZUMAB [Suspect]
     Active Substance: VEDOLIZUMAB
     Dosage: 300 MILLIGRAM
     Route: 042
  3. VEDOLIZUMAB [Suspect]
     Active Substance: VEDOLIZUMAB
     Dosage: 300 MILLIGRAM, Q4WEEKS
     Route: 042
     Dates: start: 20231019
  4. VEDOLIZUMAB [Suspect]
     Active Substance: VEDOLIZUMAB
     Dosage: 300 MILLIGRAM, Q4WEEKS
     Route: 042
  5. GRAVOL [Suspect]
     Active Substance: DIMENHYDRINATE
     Indication: Product used for unknown indication
     Route: 065
  6. APO SUMATRIPTAN [Concomitant]
     Dosage: 100 MILLIGRAM, Q2HR
     Route: 048
  7. VENLAFAXINE HYDROCHLORIDE [Concomitant]
     Active Substance: VENLAFAXINE HYDROCHLORIDE
     Dosage: 37.5 MILLIGRAM, QD
     Route: 048
  8. FLURAZEPAM [Concomitant]
     Active Substance: FLURAZEPAM HYDROCHLORIDE
     Dosage: UNK UNK, QD
     Route: 048
  9. CHOLESTYRAMINE [Concomitant]
     Active Substance: CHOLESTYRAMINE
     Dosage: UNK UNK, TID
     Route: 048
  10. URSODIOL [Concomitant]
     Active Substance: URSODIOL
     Dosage: 500 MILLIGRAM, QD
     Route: 048
  11. MESALAMINE [Concomitant]
     Active Substance: MESALAMINE
     Dosage: 400 MILLIGRAM
     Route: 048
  12. PANTOPRAZOLE [Concomitant]
     Active Substance: PANTOPRAZOLE
     Dosage: 40 MILLIGRAM, QD
     Route: 048
  13. NAPROXEN [Concomitant]
     Active Substance: NAPROXEN
     Dosage: UNK UNK, BID
     Route: 048
  14. INDAPAMIDE\PERINDOPRIL [Concomitant]
     Active Substance: INDAPAMIDE\PERINDOPRIL
     Dosage: UNK UNK, QD
     Route: 048
  15. CETIRIZINE HYDROCHLORIDE [Concomitant]
     Active Substance: CETIRIZINE HYDROCHLORIDE
     Dosage: 20 MILLIGRAM, QD
     Route: 048

REACTIONS (4)
  - Colitis ulcerative [Not Recovered/Not Resolved]
  - Therapeutic reaction time decreased [Recovering/Resolving]
  - Off label use [Unknown]
  - Somnolence [Unknown]

NARRATIVE: CASE EVENT DATE: 20231019
